FAERS Safety Report 15140380 (Version 1)
Quarter: 2018Q3

REPORT INFORMATION
  Report Type: Spontaneous
  Country: US (occurrence: US)
  Receive Date: 20180618
  Receipt Date: 20180618
  Transmission Date: 20181010
  Serious: Yes (Life-Threatening, Hospitalization)
  Sender: FDA-Public Use
  Company Number: None

PATIENT
  Age: 78 Year
  Sex: Male
  Weight: 91.9 kg

DRUGS (1)
  1. RIVAROXABAN [Suspect]
     Active Substance: RIVAROXABAN
     Indication: DEEP VEIN THROMBOSIS
     Route: 048
     Dates: start: 20180205, end: 20180227

REACTIONS (6)
  - Gingival bleeding [None]
  - Asthenia [None]
  - Malaise [None]
  - Gastric haemorrhage [None]
  - Gastrointestinal haemorrhage [None]
  - Somnolence [None]

NARRATIVE: CASE EVENT DATE: 20180223
